FAERS Safety Report 5702305-0 (Version None)
Quarter: 2008Q2

REPORT INFORMATION
  Report Type: 
  Country: None (occurrence: None)
  Receive Date: 20080411
  Receipt Date: 20080305
  Transmission Date: 20081010
  Serious: No
  Sender: FDA-Public Use
  Company Number: US-ABBOTT-08P-163-0441097-00

PATIENT
  Sex: Female
  Weight: 75.818 kg

DRUGS (9)
  1. DEPAKOTE [Suspect]
     Indication: CONVULSION
     Route: 058
  2. GLYBURIDE [Concomitant]
     Indication: TYPE 2 DIABETES MELLITUS
     Route: 048
  3. METHENAMINE HIPPURATE [Concomitant]
     Indication: URINARY TRACT INFECTION
     Route: 048
  4. SENNA ALEXANDRINA [Concomitant]
     Indication: CONSTIPATION PROPHYLAXIS
     Route: 048
  5. SORBITOL [Concomitant]
     Indication: CONSTIPATION PROPHYLAXIS
     Route: 048
  6. METOPROLOL SUCCINATE [Concomitant]
     Indication: DEMENTIA
     Route: 048
  7. NORTRIPTYLINE HYDROCHLORIDE [Concomitant]
     Indication: DEMENTIA
     Route: 048
  8. PARACETAMOL [Concomitant]
     Indication: PAIN
     Route: 048
  9. BISACODYL [Concomitant]
     Indication: CONSTIPATION
     Route: 048

REACTIONS (3)
  - CONVULSION [None]
  - DRUG LEVEL DECREASED [None]
  - DYSPHAGIA [None]
